FAERS Safety Report 4602270-3 (Version None)
Quarter: 2005Q1

REPORT INFORMATION
  Report Type: 
  Country: None (occurrence: None)
  Receive Date: 20050201
  Receipt Date: 20040614
  Transmission Date: 20050727
  Serious: Yes (Other)
  Sender: FDA-Public Use
  Company Number: 200418403BWH

PATIENT
  Age: 54 Year
  Sex: Male
  Weight: 77.1115 kg

DRUGS (1)
  1. AVELOX [Suspect]
     Indication: MALAISE
     Dosage: 400 MG, ONCE, ORAL
     Route: 048
     Dates: start: 20040401

REACTIONS (8)
  - ANAPHYLACTIC REACTION [None]
  - AURICULAR SWELLING [None]
  - BURNING SENSATION [None]
  - EAR DISCOMFORT [None]
  - OEDEMA PERIPHERAL [None]
  - PRURITUS [None]
  - RESPIRATORY DISORDER [None]
  - SWELLING FACE [None]
